FAERS Safety Report 4416574-0 (Version None)
Quarter: 2004Q2

REPORT INFORMATION
  Report Type: 
  Country: None (occurrence: None)
  Receive Date: 20040630
  Receipt Date: 20040407
  Transmission Date: 20050107
  Serious: Yes (Other)
  Sender: FDA-Public Use
  Company Number: ENTC2004-0070

PATIENT
  Sex: Male

DRUGS (4)
  1. STALEVO (TABLET) (LEVODOPA, CARBIDOPA, ENTACAPONE) [Suspect]
     Dosage: 100 MG/25 MG/200 MG 4 TIMES DAILY, ORAL
     Route: 048
  2. SELEGILINE HCL [Concomitant]
  3. CARBIDOPA W/LEVODOPA [Concomitant]
  4. PRAMIPEXOLE [Concomitant]

REACTIONS (1)
  - MUSCULOSKELETAL STIFFNESS [None]
